FAERS Safety Report 8479627-6 (Version None)
Quarter: 2012Q2

REPORT INFORMATION
  Report Type: 
  Country: None (occurrence: None)
  Receive Date: 20120629
  Receipt Date: 20120627
  Transmission Date: 20120825
  Serious: No
  Sender: FDA-Public Use
  Company Number: US-PFIZER INC-2012130484

PATIENT
  Sex: Female
  Weight: 77.098 kg

DRUGS (4)
  1. PRISTIQ [Suspect]
     Indication: POST-TRAUMATIC STRESS DISORDER
  2. VENLAFAXINE HCL EXTENDED-RELEASE [Suspect]
     Indication: BIPOLAR I DISORDER
     Dosage: 37.5 MG, 1X/DAY
     Route: 048
  3. PRISTIQ [Suspect]
     Indication: BIPOLAR I DISORDER
     Dosage: UNK, 1X/DAY
     Route: 048
  4. VENLAFAXINE HCL EXTENDED-RELEASE [Suspect]
     Indication: POST-TRAUMATIC STRESS DISORDER

REACTIONS (1)
  - STRESS [None]
